FAERS Safety Report 8288617-8 (Version None)
Quarter: 2012Q2

REPORT INFORMATION
  Report Type: 
  Country: None (occurrence: None)
  Receive Date: 20120416
  Receipt Date: 20120331
  Transmission Date: 20120825
  Serious: Yes (Death)
  Sender: FDA-Public Use
  Company Number: PHHO2012EG001271

PATIENT
  Sex: Female
  Weight: 50 kg

DRUGS (4)
  1. INSULIN [Concomitant]
     Indication: DIABETES MELLITUS
     Dosage: 50 U, UNK
  2. EXJADE [Suspect]
     Indication: IRON OVERLOAD
     Dosage: 30 MG/KG, QD
     Route: 048
     Dates: start: 20111026
  3. DESFERAL [Suspect]
     Indication: IRON OVERLOAD
     Dosage: 40 MG/KG
     Route: 058
     Dates: start: 20111026
  4. FOLIC ACID [Concomitant]
     Indication: ANAEMIA PROPHYLAXIS
     Dosage: 0.5 MG, QD

REACTIONS (3)
  - PYREXIA [None]
  - ALTERED STATE OF CONSCIOUSNESS [None]
  - VOMITING [None]
